FAERS Safety Report 6908429-4 (Version None)
Quarter: 2010Q3

REPORT INFORMATION
  Report Type: 
  Country: None (occurrence: None)
  Receive Date: 20100805
  Receipt Date: 20100728
  Transmission Date: 20110219
  Serious: Yes (Other)
  Sender: FDA-Public Use
  Company Number: US-JNJFOC-20100709183

PATIENT
  Sex: Female
  Weight: 68.04 kg

DRUGS (1)
  1. FENTANYL CITRATE [Suspect]
     Indication: PAIN
     Route: 062

REACTIONS (9)
  - ABASIA [None]
  - APPLICATION SITE DISCOLOURATION [None]
  - APPLICATION SITE EROSION [None]
  - APPLICATION SITE SCAR [None]
  - APPLICATION SITE VESICLES [None]
  - EATING DISORDER [None]
  - HYPERSENSITIVITY [None]
  - TREATMENT NONCOMPLIANCE [None]
  - WEIGHT DECREASED [None]
